FAERS Safety Report 5579648-7 (Version None)
Quarter: 2008Q1

REPORT INFORMATION
  Report Type: 
  Country: None (occurrence: None)
  Receive Date: 20080102
  Receipt Date: 20071227
  Transmission Date: 20080703
  Serious: Yes (Other)
  Sender: FDA-Public Use
  Company Number: AU-BOEHRINGER INGELHEIM PHARMACEUTICALS, INC.-2007-DE-07533GD

PATIENT
  Age: 8 Year
  Sex: Male

DRUGS (6)
  1. CLONIDINE [Suspect]
     Indication: ENCEPHALITIS LETHARGICA
  2. HALOPERIDOL [Suspect]
     Indication: ENCEPHALITIS LETHARGICA
     Route: 048
  3. MIDAZOLAM HCL [Suspect]
     Indication: ENCEPHALITIS LETHARGICA
  4. FENTANYL [Suspect]
     Indication: ENCEPHALITIS LETHARGICA
  5. KETAMINE HCL [Suspect]
     Indication: ENCEPHALITIS LETHARGICA
  6. THIOPENTONE [Suspect]
     Indication: ENCEPHALITIS LETHARGICA

REACTIONS (4)
  - DRUG INEFFECTIVE [None]
  - DYSKINESIA [None]
  - DYSTONIA [None]
  - OCULOGYRIC CRISIS [None]
